FAERS Safety Report 14606890 (Version 2)
Quarter: 2018Q1

REPORT INFORMATION
  Report Type: Spontaneous
  Country: JP (occurrence: JP)
  Receive Date: 20180307
  Receipt Date: 20180316
  Transmission Date: 20180509
  Serious: Yes (Life-Threatening, Hospitalization)
  Sender: FDA-Public Use
  Company Number: JP-BAYER-2018-023767

PATIENT
  Age: 62 Year
  Sex: Male
  Weight: 58.5 kg

DRUGS (10)
  1. LOPENA [Concomitant]
     Dosage: DAILY DOSE 2 MG
     Route: 048
  2. TENORMIN [Concomitant]
     Active Substance: ATENOLOL
     Dosage: 2.5 MG, QD
     Route: 048
  3. URSODEOXYCHOLIC ACID [Concomitant]
     Active Substance: URSODIOL
     Dosage: DAILY DOSE 900 MG
     Route: 048
  4. LOPEMIN [Concomitant]
     Active Substance: LOPERAMIDE HYDROCHLORIDE
  5. STIVARGA [Suspect]
     Active Substance: REGORAFENIB
     Indication: HEPATOCELLULAR CARCINOMA
     Dosage: 160 MG DAILY, 3 WEEKS ON 1 WEEK OFF
     Route: 048
     Dates: start: 20171124, end: 20180112
  6. PARIET [Concomitant]
     Active Substance: RABEPRAZOLE SODIUM
  7. RABEPRAZOLE SODIUM. [Concomitant]
     Active Substance: RABEPRAZOLE SODIUM
     Dosage: 10 MG, QD
     Route: 048
  8. AMLODIPINE [Concomitant]
     Active Substance: AMLODIPINE BESYLATE
     Dosage: 5 MG, QD
     Route: 048
  9. KERATINAMIN KOWA [Concomitant]
     Dosage: PROPER AMOUNT
  10. CERCINE [Concomitant]
     Active Substance: DIAZEPAM
     Dosage: DAILY DOSE 3 MG
     Route: 048

REACTIONS (4)
  - Lung infection [Recovering/Resolving]
  - Chest pain [Recovering/Resolving]
  - Gait disturbance [None]
  - Infectious pleural effusion [Recovering/Resolving]

NARRATIVE: CASE EVENT DATE: 201801
